FAERS Safety Report 8895678 (Version 1)
Quarter: 2012Q4

REPORT INFORMATION
  Report Type: Report from Study
  Country: PL (occurrence: PL)
  Receive Date: 20121108
  Receipt Date: 20121108
  Transmission Date: 20130627
  Serious: Yes (Hospitalization)
  Sender: FDA-Public Use
  Company Number: PL-ROCHE-1153374

PATIENT
  Age: 50 Year
  Sex: Female
  Weight: 67 kg

DRUGS (2)
  1. PEG-INTERFERON ALFA 2A [Suspect]
     Indication: CHRONIC HEPATITIS C
     Route: 058
     Dates: start: 20120831
  2. RIBAVIRIN [Suspect]
     Indication: CHRONIC HEPATITIS C
     Route: 048

REACTIONS (1)
  - Spinal pain [Recovered/Resolved]
